FAERS Safety Report 6553206-X (Version None)
Quarter: 2010Q1

REPORT INFORMATION
  Report Type: 
  Country: None (occurrence: None)
  Receive Date: 20100127
  Receipt Date: 20090324
  Transmission Date: 20100710
  Serious: No
  Sender: FDA-Public Use
  Company Number: A0775059A

PATIENT
  Age: 20 Year
  Sex: Female

DRUGS (2)
  1. IMITREX [Suspect]
     Indication: MIGRAINE
     Route: 058
  2. BIRTH CONTROL [Concomitant]

REACTIONS (1)
  - HYPOAESTHESIA [None]
